FAERS Safety Report 4591358-1 (Version None)
Quarter: 2005Q1

REPORT INFORMATION
  Report Type: 
  Country: None (occurrence: None)
  Receive Date: 20050222
  Receipt Date: 20050207
  Transmission Date: 20050727
  Serious: Yes (Death)
  Sender: FDA-Public Use
  Company Number: 2005S1000440

PATIENT
  Age: 52 Year
  Sex: Male

DRUGS (9)
  1. CLOZAPINE [Suspect]
     Dosage: 20MG GRAM AND 400MG HS, ORAL
     Route: 048
     Dates: start: 20040524
  2. CELECOXIB [Concomitant]
  3. ASPIRIN [Concomitant]
  4. ATENOLOL [Concomitant]
  5. ATORVASTATIN [Concomitant]
  6. TAMSULOSIN [Concomitant]
  7. TRIAMTERENE AND HYDROCHLOROTHIAZIDE [Concomitant]
  8. VALSARTAN [Concomitant]
  9. DIVALPROEX SODIUM [Concomitant]

REACTIONS (1)
  - DEATH [None]
